FAERS Safety Report 5471075-6 (Version None)
Quarter: 2007Q3

REPORT INFORMATION
  Report Type: 
  Country: None (occurrence: None)
  Receive Date: 20070925
  Receipt Date: 20070912
  Transmission Date: 20080115
  Serious: Yes (Death, Hospitalization)
  Sender: FDA-Public Use
  Company Number: 161520USA

PATIENT
  Age: 8 Month
  Sex: Female
  Weight: 4.1 kg

DRUGS (3)
  1. PROPOFOL [Suspect]
     Indication: INDUCTION OF ANAESTHESIA
     Dosage: 40 MG AND 30 MG, INTRAVENOUS
     Route: 042
  2. PROPOFOL [Suspect]
     Indication: INTUBATION
     Dosage: 40 MG AND 30 MG, INTRAVENOUS
     Route: 042
  3. FENTANYL [Suspect]
     Indication: INDUCTION OF ANAESTHESIA
     Dosage: 10 UG

REACTIONS (4)
  - ARRHYTHMIA [None]
  - BRADYCARDIA [None]
  - ELECTROMECHANICAL DISSOCIATION [None]
  - VENTRICULAR FIBRILLATION [None]
